FAERS Safety Report 5425200-3 (Version None)
Quarter: 2007Q3

REPORT INFORMATION
  Report Type: 
  Country: None (occurrence: None)
  Receive Date: 20070824
  Receipt Date: 20070824
  Transmission Date: 20080115
  Serious: Yes (Other)
  Sender: FDA-Public Use
  Company Number: A0675890A

PATIENT

DRUGS (1)
  1. ALLI [Suspect]
     Indication: WEIGHT CONTROL
     Route: 048

REACTIONS (1)
  - LOSS OF CONSCIOUSNESS [None]
